FAERS Safety Report 15317729 (Version 1)
Quarter: 2018Q3

REPORT INFORMATION
  Report Type: Spontaneous
  Country: US (occurrence: US)
  Receive Date: 20180824
  Receipt Date: 20180824
  Transmission Date: 20181010
  Serious: Yes (Other)
  Sender: FDA-Public Use
  Company Number: US-HLSUS-2018-US-000794

PATIENT
  Age: 61 Year
  Sex: Male

DRUGS (1)
  1. CLOZAPINE. [Suspect]
     Active Substance: CLOZAPINE

REACTIONS (15)
  - Cognitive disorder [Unknown]
  - Sensory integrative dysfunction [Unknown]
  - Decreased appetite [Unknown]
  - Confusional state [Unknown]
  - Upper respiratory tract infection [Unknown]
  - Visual impairment [Unknown]
  - Psychomotor skills impaired [Unknown]
  - Hypersomnia [Unknown]
  - Pyrexia [Unknown]
  - Dysarthria [Unknown]
  - Weight decreased [Unknown]
  - Blood cholesterol increased [Unknown]
  - Feeding disorder [Unknown]
  - Blood pressure increased [Unknown]
  - Gait disturbance [Unknown]
